FAERS Safety Report 12224851 (Version 1)
Quarter: 2016Q1

REPORT INFORMATION
  Report Type: Spontaneous
  Country: US (occurrence: US)
  Receive Date: 20160331
  Receipt Date: 20160331
  Transmission Date: 20160526
  Serious: No
  Sender: FDA-Public Use
  Company Number: US-PFIZER INC-2016162337

PATIENT
  Sex: Female

DRUGS (1)
  1. RELPAX [Suspect]
     Active Substance: ELETRIPTAN HYDROBROMIDE
     Dosage: ^ONLY ONE^
     Dates: start: 20160310

REACTIONS (2)
  - Migraine [Unknown]
  - Product use issue [Unknown]

NARRATIVE: CASE EVENT DATE: 201603
